FAERS Safety Report 5085202-6 (Version None)
Quarter: 2006Q3

REPORT INFORMATION
  Report Type: 
  Country: None (occurrence: None)
  Receive Date: 20060817
  Receipt Date: 20060804
  Transmission Date: 20061208
  Serious: Yes (Death, Other)
  Sender: FDA-Public Use
  Company Number: GXKR2006US04558

PATIENT
  Age: 70 Year
  Sex: Male

DRUGS (1)
  1. AMIODARONE HCL [Suspect]
     Dosage: SEE IMAGE

REACTIONS (3)
  - MYOCARDIAL INFARCTION [None]
  - OPTIC NEUROPATHY [None]
  - PAPILLOEDEMA [None]
